FAERS Safety Report 13613246 (Version 1)
Quarter: 2017Q2

REPORT INFORMATION
  Report Type: Spontaneous
  Country: ES (occurrence: ES)
  Receive Date: 20170605
  Receipt Date: 20170605
  Transmission Date: 20170830
  Serious: Yes (Hospitalization, Other)
  Sender: FDA-Public Use
  Company Number: ES-PFIZER INC-2017238535

PATIENT
  Age: 62 Year
  Sex: Female

DRUGS (10)
  1. EUTIROX [Concomitant]
     Active Substance: LEVOTHYROXINE SODIUM
     Indication: HYPOTHYROIDISM
     Dosage: 100 MG, 1X/DAY
  2. VENTOLIN [Concomitant]
     Active Substance: ALBUTEROL SULFATE
     Indication: HYPERSENSITIVITY
     Dosage: UNK UNK, AS NEEDED
  3. MELOXICAM. [Concomitant]
     Active Substance: MELOXICAM
     Indication: ANALGESIC THERAPY
     Dosage: UNK UNK, AS NEEDED
  4. ACUPREL [Concomitant]
     Indication: HYPERTENSION
     Dosage: 20 MG, 1X/DAY
  5. LORAZEPAM. [Concomitant]
     Active Substance: LORAZEPAM
     Indication: SLEEP DISORDER THERAPY
     Dosage: 1 DF, 1X/DAY
  6. SOMAVERT [Suspect]
     Active Substance: PEGVISOMANT
     Indication: ACROMEGALY
     Dosage: 15 UNK, UNK
     Route: 058
     Dates: start: 20090414
  7. SIMVASTATIN. [Concomitant]
     Active Substance: SIMVASTATIN
     Indication: HYPERCHOLESTEROLAEMIA
     Dosage: 1 DF, DAILY
  8. HIDROFEROL [Concomitant]
     Active Substance: CALCIFEDIOL
     Indication: VITAMIN D
     Dosage: 1 DF, CYCLIC (EACH 10 DAYS)
  9. MIZOLEN [Concomitant]
     Indication: HYPERSENSITIVITY
     Dosage: 1 DF, DAILY
  10. RHINOCORT /00212602/ [Concomitant]
     Indication: HYPERSENSITIVITY
     Dosage: UNK UNK, AS NEEDED

REACTIONS (6)
  - Hiatus hernia [Recovered/Resolved]
  - Anal haemorrhage [Recovered/Resolved]
  - Gastric ulcer [Unknown]
  - Product quality issue [Unknown]
  - Wrong technique in product usage process [Unknown]
  - Anaemia [Unknown]

NARRATIVE: CASE EVENT DATE: 201612
